FAERS Safety Report 10953053 (Version 1)
Quarter: 2015Q1

REPORT INFORMATION
  Report Type: Spontaneous
  Country: US (occurrence: None)
  Receive Date: 20150324
  Receipt Date: 20150324
  Transmission Date: 20150721
  Serious: No
  Sender: FDA-Public Use
  Company Number: None

PATIENT
  Age: 62 Year
  Sex: Male

DRUGS (1)
  1. NEXAVAR [Suspect]
     Active Substance: SORAFENIB
     Indication: HEPATIC CANCER
     Route: 048
     Dates: start: 20141128, end: 20150320

REACTIONS (4)
  - Blister [None]
  - Dizziness [None]
  - Rash [None]
  - Hypertension [None]

NARRATIVE: CASE EVENT DATE: 20150320
